FAERS Safety Report 10932102 (Version 1)
Quarter: 2015Q1

REPORT INFORMATION
  Report Type: Spontaneous
  Country: US (occurrence: None)
  Receive Date: 20150212
  Receipt Date: 20150212
  Transmission Date: 20150721
  Serious: Yes (Hospitalization)
  Sender: FDA-Public Use
  Company Number: TPA2010A06096

PATIENT
  Age: 69 Year
  Sex: Male

DRUGS (15)
  1. HCTZ (HYHDROCHLOROTHIAZIDE) [Concomitant]
  2. (DIABETES) [Concomitant]
  3. AMBIEN [Concomitant]
     Active Substance: ZOLPIDEM TARTRATE
  4. COLCHICINE. [Concomitant]
     Active Substance: COLCHICINE
  5. FLUOXETINE [Suspect]
     Active Substance: FLUOXETINE\FLUOXETINE HYDROCHLORIDE
  6. SYNTHROID (LEVOTHYROXINE SODIUMJ) [Concomitant]
  7. ENALAPRIL (ENALAPRIL) [Suspect]
     Active Substance: ENALAPRIL
     Route: 048
     Dates: end: 20101202
  8. ASPIRIN (ACETYLSALICYLIC ACID) [Concomitant]
     Active Substance: ASPIRIN
  9. SPIRIVA (TIOTROPIUM BROMIDE) [Concomitant]
  10. GLIMEPIRIDE. [Concomitant]
     Active Substance: GLIMEPIRIDE
  11. PREVACID [Concomitant]
     Active Substance: LANSOPRAZOLE
  12. ULORIC [Suspect]
     Active Substance: FEBUXOSTAT
     Indication: GOUT
     Dates: start: 20100817, end: 20101202
  13. JANUVIA (ANTI DIABETICS) [Concomitant]
  14. LIPITOR [Concomitant]
     Active Substance: ATORVASTATIN CALCIUM
  15. ADVAIR DISKUS [Concomitant]
     Active Substance: FLUTICASONE PROPIONATE\SALMETEROL XINAFOATE

REACTIONS (5)
  - Respiratory tract infection [None]
  - Odynophagia [None]
  - Oropharyngeal pain [None]
  - Angioedema [None]
  - Swollen tongue [None]

NARRATIVE: CASE EVENT DATE: 201011
